FAERS Safety Report 23865916 (Version 1)
Quarter: 2024Q2

REPORT INFORMATION
  Report Type: Spontaneous
  Country: BE (occurrence: BE)
  Receive Date: 20240517
  Receipt Date: 20240517
  Transmission Date: 20240716
  Serious: Yes (Hospitalization)
  Sender: FDA-Public Use
  Company Number: BE-ABBVIE-5762344

PATIENT
  Age: 43 Year

DRUGS (1)
  1. RINVOQ [Suspect]
     Active Substance: UPADACITINIB
     Indication: Ankylosing spondylitis
     Dosage: FORM STRENGTH: 15  MILLIGRAMS
     Route: 048
     Dates: start: 2024

REACTIONS (2)
  - Aphasia [Unknown]
  - Oral herpes zoster [Unknown]

NARRATIVE: CASE EVENT DATE: 20240101
